FAERS Safety Report 18610504 (Version 1)
Quarter: 2020Q4

REPORT INFORMATION
  Report Type: Spontaneous
  Country: US (occurrence: US)
  Receive Date: 20201214
  Receipt Date: 20201214
  Transmission Date: 20210114
  Serious: Yes (Death)
  Sender: FDA-Public Use
  Company Number: US-PFIZER INC-2020487359

PATIENT
  Sex: Male

DRUGS (2)
  1. SUCCINYLCHOLINE CHLORIDE. [Suspect]
     Active Substance: SUCCINYLCHOLINE CHLORIDE
     Indication: ANAESTHESIA
     Dosage: UNK
  2. HALOTHANE. [Suspect]
     Active Substance: HALOTHANE
     Indication: ANAESTHESIA
     Dosage: UNK

REACTIONS (1)
  - Death [Fatal]
